FAERS Safety Report 10063685 (Version 3)
Quarter: 2014Q2

REPORT INFORMATION
  Report Type: Report from Study
  Country: GB (occurrence: GB)
  Receive Date: 20140407
  Receipt Date: 20140501
  Transmission Date: 20141212
  Serious: Yes (Hospitalization)
  Sender: FDA-Public Use
  Company Number: GB-EXELIXIS-XL18414004165

PATIENT
  Age: 59 Year
  Sex: Male

DRUGS (17)
  1. XL184 [Suspect]
     Indication: PROSTATE CANCER
     Dosage: 60 MG, QD
     Route: 048
     Dates: start: 20140225, end: 20140403
  2. XL184 [Suspect]
     Dosage: 40 MG, QD
     Route: 048
     Dates: start: 20140422
  3. XL184 [Suspect]
     Indication: PROSTATE CANCER
     Dosage: 12 MG/M2, Q3WEEKS
     Route: 042
     Dates: start: 20140225
  4. XL184 [Suspect]
     Indication: PROSTATE CANCER
     Dosage: 5 MG, BID
     Route: 048
     Dates: start: 20140225
  5. CYPROTERONE ACETATE [Concomitant]
  6. ZOLADEX [Concomitant]
  7. FENTANYL [Concomitant]
  8. PREGABALIN [Concomitant]
  9. PARACETAMOL [Concomitant]
  10. IBUPROFEN [Concomitant]
  11. SEVREDOL [Concomitant]
  12. PREDNISOLONE [Concomitant]
  13. QUININE [Concomitant]
  14. DIAZEPAM [Concomitant]
  15. METOCLOPRAMIDE [Concomitant]
  16. OMEPRAZOLE [Concomitant]
  17. AMLODIPINE [Concomitant]

REACTIONS (2)
  - Confusional state [Recovered/Resolved]
  - Faecal incontinence [Recovered/Resolved]
